FAERS Safety Report 13729169 (Version 3)
Quarter: 2017Q3

REPORT INFORMATION
  Report Type: Report from Study
  Country: BR (occurrence: BR)
  Receive Date: 20170707
  Receipt Date: 20170921
  Transmission Date: 20171127
  Serious: Yes (Hospitalization)
  Sender: FDA-Public Use
  Company Number: BR-CELGENEUS-BRA-2017028856

PATIENT
  Age: 57 Year
  Sex: Female
  Weight: 52.9 kg

DRUGS (184)
  1. GLYCOLYZED SALINE [Concomitant]
     Dosage: 250 MILLILITER
     Route: 041
     Dates: start: 20170218, end: 20170218
  2. GLYCOLYZED SALINE [Concomitant]
     Dosage: 242 MILLILITER
     Route: 041
     Dates: start: 20170220, end: 20170220
  3. GLYCOLYZED SALINE [Concomitant]
     Dosage: 250 MILLILITER
     Route: 041
     Dates: start: 20170223, end: 20170223
  4. GLYCOLYZED SALINE [Concomitant]
     Dosage: 242 MILLILITER
     Route: 041
     Dates: start: 20170224, end: 20170303
  5. HUMAN ALBUMIN [Concomitant]
     Active Substance: ALBUMIN HUMAN
     Dosage: 100 MILLILITER
     Route: 041
     Dates: start: 20170218, end: 20170218
  6. HUMAN ALBUMIN [Concomitant]
     Active Substance: ALBUMIN HUMAN
     Dosage: 50 MILLILITER
     Route: 041
     Dates: start: 20170222, end: 20170222
  7. DIPHENHYDRAMINE HCL [Concomitant]
     Active Substance: DIPHENHYDRAMINE HYDROCHLORIDE
     Dosage: 50 MILLIGRAM
     Route: 041
     Dates: start: 20170330, end: 20170330
  8. METHYLPREDNISOLONE. [Concomitant]
     Active Substance: METHYLPREDNISOLONE
     Dosage: 60 MILLIGRAM
     Route: 041
     Dates: start: 20170303, end: 20170308
  9. PROPOFOL. [Concomitant]
     Active Substance: PROPOFOL
     Indication: H1N1 INFLUENZA
     Dosage: 200 MILLIGRAM
     Route: 041
     Dates: start: 20170217, end: 20170228
  10. TAZOCIN [Concomitant]
     Active Substance: PIPERACILLIN SODIUM\TAZOBACTAM SODIUM
     Indication: FEBRILE NEUTROPENIA
     Dosage: 4.5 MILLIGRAM
     Route: 041
     Dates: start: 20170217, end: 20170224
  11. CLONAZEPAN [Concomitant]
     Active Substance: CLONAZEPAM
     Indication: H1N1 INFLUENZA
     Dosage: 2 MILLIGRAM
     Route: 065
     Dates: start: 20170218, end: 20170503
  12. FENTANYL. [Concomitant]
     Active Substance: FENTANYL
     Dosage: 100 MILLILITER
     Route: 041
     Dates: start: 20170221, end: 20170221
  13. STERILE SALINE [Concomitant]
     Dosage: 100 MILLILITER
     Route: 041
     Dates: start: 20170221, end: 20170221
  14. STERILE SALINE [Concomitant]
     Dosage: 100 MILLILITER
     Route: 041
     Dates: start: 20170221, end: 20170221
  15. STERILE SALINE [Concomitant]
     Dosage: 144 MILLILITER
     Route: 041
     Dates: start: 20170223, end: 20170223
  16. STERILE SALINE [Concomitant]
     Dosage: 150 MILLILITER
     Route: 041
     Dates: start: 20170225, end: 20170226
  17. MAGNESIUM SULFATE. [Concomitant]
     Active Substance: MAGNESIUM SULFATE
     Dosage: 20 MILLILITER
     Route: 041
     Dates: start: 20170310, end: 20170430
  18. MIDAZOLAM [Concomitant]
     Active Substance: MIDAZOLAM HYDROCHLORIDE
     Dosage: 1500 MILLIGRAM
     Route: 041
     Dates: start: 20170302, end: 20170302
  19. DIPYRONE [Concomitant]
     Active Substance: DIPYRONE
     Indication: H1N1 INFLUENZA
     Dosage: 2 GRAM
     Route: 041
     Dates: start: 20170222, end: 20170222
  20. METHADONE [Concomitant]
     Active Substance: METHADONE HYDROCHLORIDE
     Indication: H1N1 INFLUENZA
     Dosage: 5 MILLIGRAMS (SNE)
     Route: 065
     Dates: start: 20170224, end: 20170228
  21. IVERMECTIN. [Concomitant]
     Active Substance: IVERMECTIN
     Indication: H1N1 INFLUENZA
     Dosage: 12 MILLIGRAM (SNE)
     Route: 065
     Dates: start: 20170228, end: 20170228
  22. DIGESAN [Concomitant]
     Active Substance: BROMOPRIDE
     Indication: H1N1 INFLUENZA
     Dosage: 10 MILLIGRAM
     Route: 041
     Dates: start: 20170301, end: 20170307
  23. LORAX [Concomitant]
     Active Substance: LORAZEPAM
     Indication: H1N1 INFLUENZA
     Dosage: 2 MILLIGRAMS (SNE)
     Route: 065
     Dates: start: 20170303, end: 20170325
  24. PREDNISONE. [Concomitant]
     Active Substance: PREDNISONE
     Indication: H1N1 INFLUENZA
     Dosage: 20 MILLIGRAM
     Route: 041
     Dates: start: 20170315, end: 20170409
  25. CARIAX MOUTHWASH [Concomitant]
     Indication: H1N1 INFLUENZA
     Dosage: 10 MILLILITERS (VO)
     Route: 065
     Dates: start: 20170409, end: 20170503
  26. CC-5013 [Suspect]
     Active Substance: LENALIDOMIDE
     Indication: LYMPHOMA
     Dosage: 20 MILLIGRAM
     Route: 048
     Dates: start: 20161125, end: 20161221
  27. GLYCOLYZED SALINE [Concomitant]
     Dosage: 484 MILLILITER
     Route: 041
     Dates: start: 20170219, end: 20170219
  28. GLYCOLYZED SALINE [Concomitant]
     Dosage: 250 MILLILITER
     Route: 041
     Dates: start: 20170226, end: 20170228
  29. POTASSIUM CHLORIDE. [Concomitant]
     Active Substance: POTASSIUM CHLORIDE
     Dosage: 20 MILLILITER
     Route: 041
     Dates: start: 20170220, end: 20170220
  30. POTASSIUM CHLORIDE. [Concomitant]
     Active Substance: POTASSIUM CHLORIDE
     Dosage: 20 MILLILITER
     Route: 041
     Dates: start: 20170224, end: 20170224
  31. DIPHENHYDRAMINE HCL [Concomitant]
     Active Substance: DIPHENHYDRAMINE HYDROCHLORIDE
     Indication: H1N1 INFLUENZA
     Dosage: 50 MILLIGRAM
     Route: 041
     Dates: start: 20170217, end: 20170217
  32. METHYLPREDNISOLONE. [Concomitant]
     Active Substance: METHYLPREDNISOLONE
     Dosage: 40 MILLIGRAM
     Route: 041
     Dates: start: 20170217, end: 20170219
  33. METHYLPREDNISOLONE. [Concomitant]
     Active Substance: METHYLPREDNISOLONE
     Dosage: 40 MILLIGRAM
     Route: 041
     Dates: start: 20170309, end: 20170314
  34. PROPOFOL. [Concomitant]
     Active Substance: PROPOFOL
     Dosage: 300 MILLILITER
     Route: 041
     Dates: start: 20170221, end: 20170221
  35. ESCITALOPRAM [Concomitant]
     Active Substance: ESCITALOPRAM OXALATE
     Indication: H1N1 INFLUENZA
     Dosage: 10 MILLIGRAM
     Route: 065
     Dates: start: 20170218, end: 20170219
  36. STERILE SALINE [Concomitant]
     Dosage: 250 MILLILITER
     Route: 041
     Dates: start: 20170224, end: 20170224
  37. STERILE SALINE [Concomitant]
     Dosage: 250 MILLILITER
     Route: 041
     Dates: start: 20170307, end: 20170307
  38. SODIUM HEPARIN [Concomitant]
     Active Substance: HEPARIN SODIUM
     Indication: H1N1 INFLUENZA
     Dosage: 5000 IU (INTERNATIONAL UNIT)
     Route: 058
     Dates: start: 20170220, end: 20170306
  39. MIDAZOLAM [Concomitant]
     Active Substance: MIDAZOLAM HYDROCHLORIDE
     Dosage: 5 MILLIGRAM
     Route: 041
     Dates: start: 20170224, end: 20170224
  40. MIDAZOLAM [Concomitant]
     Active Substance: MIDAZOLAM HYDROCHLORIDE
     Dosage: 250 MILLIGRAM
     Route: 041
     Dates: start: 20170303, end: 20170303
  41. DEXMEDETOMIDINE. [Concomitant]
     Active Substance: DEXMEDETOMIDINE
     Indication: H1N1 INFLUENZA
     Dosage: 200 MICROGRAM
     Route: 041
     Dates: start: 20170222, end: 20170222
  42. LINEZOLID. [Concomitant]
     Active Substance: LINEZOLID
     Indication: H1N1 INFLUENZA
     Dosage: 600 MILLIGRAM
     Route: 041
     Dates: start: 20170225, end: 20170307
  43. MAGNEN B6 [Concomitant]
     Indication: H1N1 INFLUENZA
     Dosage: 1 TABLET (722.2MG/1MG)
     Route: 065
     Dates: start: 20170403, end: 20170406
  44. ONDANSETRON [Concomitant]
     Active Substance: ONDANSETRON
     Indication: H1N1 INFLUENZA
     Dosage: 4 MILLIGRAM
     Route: 041
     Dates: start: 20170405, end: 20170503
  45. NEULASTIM [Concomitant]
     Active Substance: PEGFILGRASTIM
     Indication: NEUTROPENIA
     Dosage: 6 MILLIGRAM
     Route: 058
     Dates: start: 20170426, end: 20170426
  46. RITUXIMAB. [Suspect]
     Active Substance: RITUXIMAB
     Dosage: 637.5 MILLIGRAM/SQ. METER
     Route: 041
     Dates: start: 20170120, end: 20170120
  47. GLYCOLYZED SALINE [Concomitant]
     Dosage: 100 MILLILITER
     Route: 041
     Dates: start: 20170223, end: 20170223
  48. HUMAN ALBUMIN [Concomitant]
     Active Substance: ALBUMIN HUMAN
     Dosage: 50 MILLILITER
     Route: 041
     Dates: start: 20170223, end: 20170223
  49. SERUM GLYCOSATED [Concomitant]
     Indication: PRODUCT USED FOR UNKNOWN INDICATION
     Dosage: 250 MILLILITER
     Route: 041
     Dates: start: 20170217, end: 20170218
  50. POTASSIUM CHLORIDE. [Concomitant]
     Active Substance: POTASSIUM CHLORIDE
     Dosage: 30 MILLILITER
     Route: 041
     Dates: start: 20170222, end: 20170222
  51. POTASSIUM CHLORIDE. [Concomitant]
     Active Substance: POTASSIUM CHLORIDE
     Dosage: 30 MILLILITER
     Route: 041
     Dates: start: 20170223, end: 20170223
  52. CISATRACURIUM. [Concomitant]
     Active Substance: CISATRACURIUM
     Dosage: 5 MILLILITER
     Route: 041
     Dates: start: 20170219, end: 20170219
  53. CISATRACURIUM. [Concomitant]
     Active Substance: CISATRACURIUM
     Dosage: 300 MILLILITER
     Route: 041
     Dates: start: 20170225, end: 20170226
  54. PROPOFOL. [Concomitant]
     Active Substance: PROPOFOL
     Dosage: 300 MILLILITER
     Route: 041
     Dates: start: 20170219, end: 20170219
  55. FENTANYL. [Concomitant]
     Active Substance: FENTANYL
     Indication: H1N1 INFLUENZA
     Dosage: 50 MILLILITER
     Route: 041
     Dates: start: 20170219, end: 20170220
  56. FENTANYL. [Concomitant]
     Active Substance: FENTANYL
     Dosage: 100 MILLILITER
     Route: 041
     Dates: start: 20170228, end: 20170228
  57. STERILE SALINE [Concomitant]
     Dosage: 234 MILLILITER
     Route: 041
     Dates: start: 20170220, end: 20170223
  58. STERILE SALINE [Concomitant]
     Dosage: 100 MILLILITER
     Route: 041
     Dates: start: 20170227, end: 20170227
  59. STERILE SALINE [Concomitant]
     Dosage: 150 MILLILITER
     Route: 041
     Dates: start: 20170227, end: 20170228
  60. CALCIUM GLUCONATE. [Concomitant]
     Active Substance: CALCIUM GLUCONATE
     Indication: H1N1 INFLUENZA
     Dosage: 20 MILLILITER
     Route: 041
     Dates: start: 20170220, end: 20170220
  61. MAGNESIUM SULFATE. [Concomitant]
     Active Substance: MAGNESIUM SULFATE
     Indication: H1N1 INFLUENZA
     Dosage: 20 MILLILITER
     Route: 041
     Dates: start: 20170221, end: 20170221
  62. MAGNESIUM SULFATE. [Concomitant]
     Active Substance: MAGNESIUM SULFATE
     Dosage: 10 MILLILITER
     Route: 041
     Dates: start: 20170223, end: 20170223
  63. MAGNESIUM SULFATE. [Concomitant]
     Active Substance: MAGNESIUM SULFATE
     Dosage: 20 MILLILITER
     Route: 041
     Dates: start: 20170224, end: 20170224
  64. DEXMEDETOMIDINE. [Concomitant]
     Active Substance: DEXMEDETOMIDINE
     Dosage: 800 MICROGRAM
     Route: 041
     Dates: start: 20170224, end: 20170224
  65. SEROQUEL [Concomitant]
     Active Substance: QUETIAPINE FUMARATE
     Indication: H1N1 INFLUENZA
     Dosage: 25 MILLIGRAMS (SNE)
     Route: 065
     Dates: start: 20170222, end: 20170222
  66. MERONEM [Concomitant]
     Active Substance: MEROPENEM
     Dosage: 1 GRAM
     Route: 041
     Dates: start: 20170226, end: 20170307
  67. PROPANTELINE [Concomitant]
     Dosage: 1 APPLICATION (TTS)
     Route: 065
     Dates: start: 20170309, end: 20170319
  68. GLUCOSE [Concomitant]
     Active Substance: DEXTROSE
     Indication: H1N1 INFLUENZA
     Dosage: 250 MILLILITER
     Route: 041
     Dates: start: 20170310, end: 20170310
  69. ENOXAPARIN SODIUM. [Concomitant]
     Active Substance: ENOXAPARIN SODIUM
     Indication: H1N1 INFLUENZA
     Dosage: 40 MILLIGRAM
     Route: 058
     Dates: start: 20170316, end: 20170502
  70. MAGNESIUM OXIDE. [Concomitant]
     Active Substance: MAGNESIUM OXIDE
     Indication: H1N1 INFLUENZA
     Dosage: 250MG/5ML (VO)
     Route: 065
     Dates: start: 20170317, end: 20170401
  71. GRANULOKINE [Concomitant]
     Active Substance: FILGRASTIM
     Indication: NEUTROPENIA
     Dosage: 300 MICROGRAM
     Route: 041
     Dates: start: 20170502, end: 20170503
  72. CC-5013 [Suspect]
     Active Substance: LENALIDOMIDE
     Dosage: 20 MILLIGRAM
     Route: 048
     Dates: start: 20170120, end: 20170223
  73. POTASSIUM CHLORIDE. [Concomitant]
     Active Substance: POTASSIUM CHLORIDE
     Dosage: 20 MILLILITER
     Route: 041
     Dates: start: 20170221, end: 20170221
  74. POTASSIUM CHLORIDE. [Concomitant]
     Active Substance: POTASSIUM CHLORIDE
     Dosage: 20 MILLILITER
     Route: 041
     Dates: start: 20170307, end: 20170307
  75. HYDROCORTISONE. [Concomitant]
     Active Substance: HYDROCORTISONE
     Indication: H1N1 INFLUENZA
     Dosage: 100 MILLIGRAM
     Route: 041
     Dates: start: 20170217, end: 20170217
  76. METHYLPREDNISOLONE. [Concomitant]
     Active Substance: METHYLPREDNISOLONE
     Indication: H1N1 INFLUENZA
     Dosage: 80 MILLIGRAM
     Route: 041
     Dates: start: 20170217, end: 20170218
  77. METHYLPREDNISOLONE. [Concomitant]
     Active Substance: METHYLPREDNISOLONE
     Dosage: 30 MILLIGRAM
     Route: 041
     Dates: start: 20170224, end: 20170227
  78. PROPOFOL. [Concomitant]
     Active Substance: PROPOFOL
     Dosage: 200 MILLIGRAM
     Route: 041
     Dates: start: 20170220, end: 20170220
  79. FLUCONAZOLE. [Concomitant]
     Active Substance: FLUCONAZOLE
     Indication: URINARY TRACT INFECTION FUNGAL
     Dosage: 200 MILLIGRAM
     Route: 065
  80. STERILE SALINE [Concomitant]
     Dosage: 144 MILLILITER
     Route: 041
     Dates: start: 20170303, end: 20170303
  81. NOREPINEPHRINE. [Concomitant]
     Active Substance: NOREPINEPHRINE
     Dosage: 16 MILLILITER
     Route: 041
     Dates: start: 20170220, end: 20170223
  82. ENDOBULIN [Concomitant]
     Active Substance: HUMAN IMMUNOGLOBULIN G
     Indication: H1N1 INFLUENZA
     Dosage: 30 GRAM
     Route: 041
     Dates: start: 20170219, end: 20170219
  83. CALCIUM GLUCONATE. [Concomitant]
     Active Substance: CALCIUM GLUCONATE
     Dosage: 20 MILLILITER
     Route: 041
     Dates: start: 20170222, end: 20170222
  84. DEXMEDETOMIDINE. [Concomitant]
     Active Substance: DEXMEDETOMIDINE
     Dosage: 600 MICROGRAM
     Route: 041
     Dates: start: 20170223, end: 20170223
  85. DEXMEDETOMIDINE. [Concomitant]
     Active Substance: DEXMEDETOMIDINE
     Dosage: 600 MICROGRAM
     Route: 041
     Dates: start: 20170303, end: 20170303
  86. SEROQUEL [Concomitant]
     Active Substance: QUETIAPINE FUMARATE
     Dosage: 25 MILLIGRAMS (SNE)
     Route: 065
     Dates: start: 20170223, end: 20170225
  87. DIPYRONE [Concomitant]
     Active Substance: DIPYRONE
     Dosage: 2 GRAM
     Route: 041
     Dates: start: 20170308, end: 20170503
  88. PROPANTELINE [Concomitant]
     Dosage: 1 APPLICATION (TTS)
     Route: 065
     Dates: start: 20170307, end: 20170308
  89. PROPANTELINE [Concomitant]
     Dosage: 1 SACHET
     Route: 062
     Dates: start: 20170311, end: 20170319
  90. ATROPINE. [Concomitant]
     Active Substance: ATROPINE
     Dosage: 1 DROPS
     Route: 047
     Dates: start: 20170307, end: 20170309
  91. SIMETHICONE (DIMETHICONE) [Concomitant]
     Active Substance: DIMETHICONE
     Indication: H1N1 INFLUENZA
     Dosage: 40 DROPS (SNE)
     Route: 065
     Dates: start: 20170310, end: 20170503
  92. XYLOPROCT [Concomitant]
     Indication: H1N1 INFLUENZA
     Dosage: 1 APPLICATION
     Route: 061
     Dates: start: 20170326, end: 20170503
  93. REMERON [Concomitant]
     Active Substance: MIRTAZAPINE
     Indication: H1N1 INFLUENZA
     Dosage: 15 MILLIGRAM (VO)
     Route: 065
     Dates: start: 20170420, end: 20170503
  94. RITUXIMAB. [Suspect]
     Active Substance: RITUXIMAB
     Dosage: 637.5 MILLIGRAM/SQ. METER
     Route: 041
     Dates: start: 20170405
  95. GLYCOLYZED SALINE [Concomitant]
     Dosage: 250 MILLILITER
     Route: 041
     Dates: start: 20170223, end: 20170223
  96. HUMAN ALBUMIN [Concomitant]
     Active Substance: ALBUMIN HUMAN
     Dosage: 150 MILLILITER
     Route: 041
     Dates: start: 20170217, end: 20170218
  97. POTASSIUM CHLORIDE. [Concomitant]
     Active Substance: POTASSIUM CHLORIDE
     Indication: H1N1 INFLUENZA
     Dosage: 20 MILLILITER
     Route: 041
     Dates: start: 20170218, end: 20170218
  98. POTASSIUM CHLORIDE. [Concomitant]
     Active Substance: POTASSIUM CHLORIDE
     Dosage: 10 MILLILITER
     Route: 041
     Dates: start: 20170223, end: 20170223
  99. POTASSIUM CHLORIDE. [Concomitant]
     Active Substance: POTASSIUM CHLORIDE
     Dosage: 20 MILLILITER
     Route: 041
     Dates: start: 20170310, end: 20170327
  100. CISATRACURIUM. [Concomitant]
     Active Substance: CISATRACURIUM
     Dosage: 200 MILLILITER
     Route: 041
     Dates: start: 20170227, end: 20170227
  101. CISATRACURIUM. [Concomitant]
     Active Substance: CISATRACURIUM
     Dosage: 100 MILLILITER
     Route: 041
     Dates: start: 20170301, end: 20170302
  102. HYDROCORTISONE. [Concomitant]
     Active Substance: HYDROCORTISONE
     Dosage: 50 MILLIGRAM
     Route: 041
     Dates: start: 20170223, end: 20170224
  103. METHYLPREDNISOLONE. [Concomitant]
     Active Substance: METHYLPREDNISOLONE
     Dosage: 1000 MILLIGRAM
     Route: 041
     Dates: start: 20170228, end: 20170302
  104. PROPOFOL. [Concomitant]
     Active Substance: PROPOFOL
     Dosage: 200 MILLILITER
     Route: 041
     Dates: start: 20170224, end: 20170224
  105. PANTOPRAZOLE [Concomitant]
     Active Substance: PANTOPRAZOLE
     Indication: H1N1 INFLUENZA
     Dosage: 40 MILLIGRAM
     Route: 041
     Dates: start: 20170218, end: 20170503
  106. FENTANYL. [Concomitant]
     Active Substance: FENTANYL
     Dosage: 50 MILLILITER
     Route: 041
     Dates: start: 20170222, end: 20170227
  107. STERILE SALINE [Concomitant]
     Indication: H1N1 INFLUENZA
     Dosage: 100 MILLILITER
     Route: 041
     Dates: start: 20170219, end: 20170219
  108. STERILE SALINE [Concomitant]
     Dosage: 250 MILLILITER
     Route: 041
     Dates: start: 20170220, end: 20170220
  109. STERILE SALINE [Concomitant]
     Dosage: 100 MILLILITER
     Route: 041
     Dates: start: 20170220, end: 20170220
  110. STERILE SALINE [Concomitant]
     Dosage: 192 MILLILITER
     Route: 041
     Dates: start: 20170224, end: 20170224
  111. STERILE SALINE [Concomitant]
     Dosage: 100 MILLILITER
     Route: 041
     Dates: start: 20170309, end: 20170309
  112. MIDAZOLAM [Concomitant]
     Active Substance: MIDAZOLAM HYDROCHLORIDE
     Indication: H1N1 INFLUENZA
     Dosage: 250 MILLIGRAM
     Route: 041
     Dates: start: 20170222, end: 20170224
  113. SUCCINIL COLIN [Concomitant]
     Indication: H1N1 INFLUENZA
     Dosage: 70 MILLIGRAM
     Route: 041
     Dates: start: 20170223, end: 20170223
  114. SEROQUEL [Concomitant]
     Active Substance: QUETIAPINE FUMARATE
     Dosage: 12.5 MILLIGRAMS (SNE)
     Route: 065
     Dates: start: 20170305
  115. MERONEM [Concomitant]
     Active Substance: MEROPENEM
     Dosage: 500 MILLIGRAM
     Route: 041
     Dates: start: 20170307, end: 20170312
  116. PARACETAMOL [Concomitant]
     Active Substance: ACETAMINOPHEN
     Indication: H1N1 INFLUENZA
     Dosage: 40 DROPS (SNE)
     Route: 065
     Dates: start: 20170224, end: 20170224
  117. ATROPINE. [Concomitant]
     Active Substance: ATROPINE
     Indication: H1N1 INFLUENZA
     Dosage: 1 DROPS
     Route: 047
     Dates: start: 20170306, end: 20170307
  118. BUSCOPAN [Concomitant]
     Active Substance: BUTYLSCOPOLAMINE BROMIDE
     Indication: H1N1 INFLUENZA
     Dosage: 5 MILLILITER
     Route: 055
     Dates: start: 20170306, end: 20170309
  119. PROSTIGMIN [Concomitant]
     Active Substance: NEOSTIGMINE BROMIDE
     Indication: H1N1 INFLUENZA
     Dosage: .5 MILLIGRAM
     Route: 041
     Dates: start: 20170310, end: 20170311
  120. POTASSIUM PHOSPHATE [Concomitant]
     Active Substance: POTASSIUM PHOSPHATE
     Indication: H1N1 INFLUENZA
     Dosage: 20 MILLILITER
     Route: 041
     Dates: start: 20170310, end: 20170310
  121. BEPANTOL DERMA [Concomitant]
     Indication: H1N1 INFLUENZA
     Dosage: 1 APPLICATION
     Route: 061
     Dates: start: 20170409, end: 20170503
  122. CC-5013 [Suspect]
     Active Substance: LENALIDOMIDE
     Dosage: 15 MILLIGRAM
     Route: 048
     Dates: start: 20170405
  123. GLYCOLYZED SALINE [Concomitant]
     Dosage: 250 MILLILITER
     Route: 041
     Dates: start: 20170304, end: 20170306
  124. GLYCOLYZED SALINE [Concomitant]
     Dosage: 248 MILLILITER
     Route: 041
     Dates: start: 20170305, end: 20170306
  125. HUMAN ALBUMIN [Concomitant]
     Active Substance: ALBUMIN HUMAN
     Indication: H1N1 INFLUENZA
     Dosage: 200 MILLILITER
     Route: 041
     Dates: start: 20170217, end: 20170218
  126. HUMAN ALBUMIN [Concomitant]
     Active Substance: ALBUMIN HUMAN
     Dosage: 50 MILLILITER
     Route: 041
     Dates: start: 20170225, end: 20170225
  127. CISATRACURIUM. [Concomitant]
     Active Substance: CISATRACURIUM
     Indication: H1N1 INFLUENZA
     Dosage: 10 MILLIGRAM
     Route: 041
     Dates: start: 20170219, end: 20170221
  128. CISATRACURIUM. [Concomitant]
     Active Substance: CISATRACURIUM
     Dosage: 200 MILLIGRAM
     Route: 041
     Dates: start: 20170221, end: 20170221
  129. PROPOFOL. [Concomitant]
     Active Substance: PROPOFOL
     Dosage: 400 MILLILITER
     Route: 041
     Dates: start: 20170222, end: 20170222
  130. PROPOFOL. [Concomitant]
     Active Substance: PROPOFOL
     Dosage: 100 MILLILITER
     Route: 041
     Dates: start: 20170223, end: 20170223
  131. FLUCONAZOLE. [Concomitant]
     Active Substance: FLUCONAZOLE
     Dosage: 400 MILLIGRAM
     Route: 041
     Dates: start: 20170307, end: 20170314
  132. ESCITALOPRAM [Concomitant]
     Active Substance: ESCITALOPRAM OXALATE
     Dosage: 10 MILLIGRAM (VO)
     Route: 065
     Dates: start: 20170323, end: 20170503
  133. NOREPINEPHRINE. [Concomitant]
     Active Substance: NOREPINEPHRINE
     Indication: H1N1 INFLUENZA
     Dosage: 16 MILLIGRAM
     Route: 041
     Dates: start: 20170219, end: 20170219
  134. NOREPINEPHRINE. [Concomitant]
     Active Substance: NOREPINEPHRINE
     Dosage: 8 MILLIGRAM
     Route: 041
     Dates: start: 20170220, end: 20170220
  135. SODIUM HEPARIN [Concomitant]
     Active Substance: HEPARIN SODIUM
     Dosage: 10000 IU (INTERNATIONAL UNIT)
     Route: 058
     Dates: start: 20170226, end: 20170226
  136. MAGNESIUM SULFATE. [Concomitant]
     Active Substance: MAGNESIUM SULFATE
     Dosage: 20 MILLILITER
     Route: 041
     Dates: start: 20170309, end: 20170309
  137. MIDAZOLAM [Concomitant]
     Active Substance: MIDAZOLAM HYDROCHLORIDE
     Dosage: 15 MILLIGRAM
     Route: 041
     Dates: start: 20170224, end: 20170224
  138. MIDAZOLAM [Concomitant]
     Active Substance: MIDAZOLAM HYDROCHLORIDE
     Route: 041
     Dates: start: 20170227, end: 20170227
  139. MIDAZOLAM [Concomitant]
     Active Substance: MIDAZOLAM HYDROCHLORIDE
     Route: 041
     Dates: start: 20170228, end: 20170228
  140. DIGESAN [Concomitant]
     Active Substance: BROMOPRIDE
     Dosage: 10 MILLIGRAM
     Route: 041
     Dates: start: 20170310, end: 20170322
  141. LORAZEPAM. [Concomitant]
     Active Substance: LORAZEPAM
     Indication: H1N1 INFLUENZA
     Dosage: 1 MILLIGRAM (SNE)
     Route: 065
     Dates: start: 20170303, end: 20170321
  142. BROMOPRIDE [Concomitant]
     Active Substance: BROMOPRIDE
     Indication: H1N1 INFLUENZA
     Dosage: 30 MILLIGRAM
     Route: 065
     Dates: start: 20170412, end: 20170503
  143. RITUXIMAB. [Suspect]
     Active Substance: RITUXIMAB
     Indication: LYMPHOMA
     Dosage: 637.5 MILLIGRAM/SQ. METER
     Route: 041
     Dates: start: 20161125, end: 20161216
  144. GLYCOLYZED SALINE [Concomitant]
     Dosage: 250 MILLILITER
     Route: 041
     Dates: start: 20170221, end: 20170221
  145. GLYCOLYZED SALINE [Concomitant]
     Dosage: 100 MILLILITER
     Route: 041
     Dates: start: 20170310, end: 20170310
  146. POTASSIUM CHLORIDE. [Concomitant]
     Active Substance: POTASSIUM CHLORIDE
     Dosage: 10 MILLILITER
     Route: 041
     Dates: start: 20170220, end: 20170220
  147. POTASSIUM CHLORIDE. [Concomitant]
     Active Substance: POTASSIUM CHLORIDE
     Dosage: 20 MILLILITER
     Route: 041
     Dates: start: 20170222, end: 20170222
  148. CISATRACURIUM. [Concomitant]
     Active Substance: CISATRACURIUM
     Dosage: 200 MILLIGRAM
     Route: 041
     Dates: start: 20170219, end: 20170219
  149. CISATRACURIUM. [Concomitant]
     Active Substance: CISATRACURIUM
     Dosage: 300 MILLIGRAM
     Route: 041
     Dates: start: 20170220, end: 20170220
  150. CISATRACURIUM. [Concomitant]
     Active Substance: CISATRACURIUM
     Dosage: 10 MILLILITER
     Route: 041
     Dates: start: 20170221, end: 20170221
  151. CISATRACURIUM. [Concomitant]
     Active Substance: CISATRACURIUM
     Dosage: 5 MILLILITER
     Route: 041
     Dates: start: 20170225, end: 20170226
  152. PURAN [Concomitant]
     Active Substance: LEVOTHYROXINE SODIUM
     Indication: H1N1 INFLUENZA
     Dosage: 50 MICROGRAM
     Route: 065
     Dates: start: 20170218, end: 20170503
  153. STERILE SALINE [Concomitant]
     Dosage: 200 MILLILITER
     Route: 041
     Dates: start: 20170222, end: 20170222
  154. STERILE SALINE [Concomitant]
     Dosage: 300 MILLILITER
     Route: 041
     Dates: start: 20170222, end: 20170222
  155. MAGNESIUM SULFATE. [Concomitant]
     Active Substance: MAGNESIUM SULFATE
     Dosage: 20 MILLILITER
     Route: 041
     Dates: start: 20170307, end: 20170307
  156. MIDAZOLAM [Concomitant]
     Active Substance: MIDAZOLAM HYDROCHLORIDE
     Dosage: 750 MILLIGRAM
     Route: 041
     Dates: start: 20170225, end: 20170226
  157. MIDAZOLAM [Concomitant]
     Active Substance: MIDAZOLAM HYDROCHLORIDE
     Dosage: 2500 MILLIGRAM
     Route: 041
     Dates: start: 20170301, end: 20170301
  158. DIPYRONE [Concomitant]
     Active Substance: DIPYRONE
     Dosage: 2 GRAM
     Route: 041
     Dates: start: 20170305, end: 20170306
  159. MERONEM [Concomitant]
     Active Substance: MEROPENEM
     Indication: H1N1 INFLUENZA
     Dosage: 1 GRAM
     Route: 041
     Dates: start: 20170224, end: 20170225
  160. PARACETAMOL [Concomitant]
     Active Substance: ACETAMINOPHEN
     Dosage: 40 DROPS (SNE)
     Route: 065
     Dates: start: 20170225, end: 20170227
  161. SLOW K [Concomitant]
     Active Substance: POTASSIUM CHLORIDE
     Indication: H1N1 INFLUENZA
     Dosage: 600 MILLIGRAMS (ENT)
     Route: 065
     Dates: start: 20170319, end: 20170428
  162. DRAMIN B6 [Concomitant]
     Indication: H1N1 INFLUENZA
     Dosage: 10 MILLILITER
     Route: 041
     Dates: start: 20170423, end: 20170503
  163. TAZOBACTAM [Concomitant]
     Active Substance: TAZOBACTAM
     Indication: PRODUCT USED FOR UNKNOWN INDICATION
     Dosage: 18 GRAM
     Route: 041
     Dates: start: 20170218, end: 20170223
  164. GLYCOLYZED SALINE [Concomitant]
     Indication: H1N1 INFLUENZA
     Dosage: 500 MILLILITER
     Route: 041
     Dates: start: 20170217, end: 20170217
  165. GLYCOLYZED SALINE [Concomitant]
     Dosage: 250 MILLILITER
     Route: 041
     Dates: start: 20170219, end: 20170220
  166. GLYCOLYZED SALINE [Concomitant]
     Dosage: 250 MILLILITER
     Route: 041
     Dates: start: 20170301, end: 20170302
  167. HUMAN ALBUMIN [Concomitant]
     Active Substance: ALBUMIN HUMAN
     Dosage: 50 MILLILITER
     Route: 041
     Dates: start: 20170218, end: 20170221
  168. POTASSIUM CHLORIDE. [Concomitant]
     Active Substance: POTASSIUM CHLORIDE
     Dosage: 20 MILLILITER
     Route: 041
     Dates: start: 20170222, end: 20170222
  169. CISATRACURIUM. [Concomitant]
     Active Substance: CISATRACURIUM
     Dosage: 20 MILLILITER
     Route: 041
     Dates: start: 20170224, end: 20170224
  170. CISATRACURIUM. [Concomitant]
     Active Substance: CISATRACURIUM
     Dosage: 300 MILLILITER
     Route: 041
     Dates: start: 20170227, end: 20170228
  171. PROPOFOL. [Concomitant]
     Active Substance: PROPOFOL
     Dosage: 5 MILLILITER
     Route: 041
     Dates: start: 20170223, end: 20170223
  172. PLASMA LYTE [Concomitant]
     Indication: H1N1 INFLUENZA
     Dosage: 400 MILLILITER
     Route: 041
     Dates: start: 20170218, end: 20170218
  173. FENTANYL. [Concomitant]
     Active Substance: FENTANYL
     Dosage: 50 MILLILITER
     Route: 041
     Dates: start: 20170301, end: 20170305
  174. STERILE SALINE [Concomitant]
     Dosage: 150 MILLILITER
     Route: 041
     Dates: start: 20170220, end: 20170220
  175. STERILE SALINE [Concomitant]
     Dosage: 48 MILLILITER
     Route: 041
     Dates: start: 20170222, end: 20170222
  176. STERILE SALINE [Concomitant]
     Dosage: 100 MILLILITER
     Route: 041
     Dates: start: 20170224, end: 20170224
  177. STERILE SALINE [Concomitant]
     Dosage: 50 MILLILITER
     Route: 041
     Dates: start: 20170301, end: 20170302
  178. NOREPINEPHRINE. [Concomitant]
     Active Substance: NOREPINEPHRINE
     Dosage: 8 MILLIGRAM
     Route: 041
     Dates: start: 20170224, end: 20170303
  179. HALDOL [Concomitant]
     Active Substance: HALOPERIDOL
     Indication: H1N1 INFLUENZA
     Dosage: 2 MILLIGRAM
     Route: 041
     Dates: start: 20170223, end: 20170223
  180. DIPYRONE [Concomitant]
     Active Substance: DIPYRONE
     Dosage: 2 GRAM
     Route: 041
     Dates: start: 20170225, end: 20170227
  181. HYDROCHLOROTHIAZIDE. [Concomitant]
     Active Substance: HYDROCHLOROTHIAZIDE
     Indication: H1N1 INFLUENZA
     Dosage: 25 MILLIGRAM
     Route: 065
     Dates: start: 20170224, end: 20170228
  182. SODIUM NITROPPRUSSIDE [Concomitant]
     Indication: H1N1 INFLUENZA
     Dosage: 50 MILLIGRAM
     Route: 041
     Dates: start: 20170305, end: 20170306
  183. PROPANTELINE [Concomitant]
     Indication: H1N1 INFLUENZA
     Dosage: 1 APPLICATION (TTS)
     Route: 062
     Dates: start: 20170311, end: 20170319
  184. COMPOUND BUSCOPAM [Concomitant]
     Indication: H1N1 INFLUENZA
     Dosage: 5 MILLILITER
     Route: 041
     Dates: start: 20170413, end: 20170503

REACTIONS (6)
  - Acute kidney injury [Recovered/Resolved]
  - Febrile neutropenia [Recovered/Resolved]
  - Pneumonia influenzal [Recovered/Resolved]
  - General physical health deterioration [Recovered/Resolved]
  - Intensive care unit acquired weakness [Recovered/Resolved]
  - Muscle atrophy [Recovered/Resolved]

NARRATIVE: CASE EVENT DATE: 20170217
